FAERS Safety Report 25636102 (Version 1)
Quarter: 2025Q3

REPORT INFORMATION
  Report Type: Spontaneous
  Country: US (occurrence: US)
  Receive Date: 20250803
  Receipt Date: 20250803
  Transmission Date: 20251021
  Serious: No
  Sender: PADAGIS
  Company Number: US-PADAGIS-2025PAD00877

PATIENT

DRUGS (3)
  1. TESTOSTERONE [Suspect]
     Active Substance: TESTOSTERONE
     Indication: Hypogonadism male
     Route: 065
     Dates: start: 202409
  2. TESTOSTERONE [Suspect]
     Active Substance: TESTOSTERONE
     Route: 065
  3. TESTOSTERONE [Suspect]
     Active Substance: TESTOSTERONE
     Route: 065

REACTIONS (2)
  - Application site pruritus [Recovered/Resolved]
  - Product administered at inappropriate site [Unknown]

NARRATIVE: CASE EVENT DATE: 20241101
